FAERS Safety Report 9143687 (Version 2)
Quarter: 2013Q2

REPORT INFORMATION
  Report Type: Spontaneous
  Country: SK (occurrence: SK)
  Receive Date: 20130306
  Receipt Date: 20130430
  Transmission Date: 20140414
  Serious: Yes (Hospitalization, Other)
  Sender: FDA-Public Use
  Company Number: SK-ROCHE-1198376

PATIENT
  Age: 70 Year
  Sex: Female

DRUGS (4)
  1. HERCEPTIN [Suspect]
     Indication: BREAST CANCER
     Route: 065
     Dates: start: 200608, end: 200704
  2. HERCEPTIN [Suspect]
     Route: 065
     Dates: start: 200705, end: 201105
  3. HERCEPTIN [Suspect]
     Route: 065
     Dates: start: 201109
  4. LETROZOLE [Concomitant]
     Route: 065
     Dates: start: 200705

REACTIONS (1)
  - Immunodeficiency [Recovering/Resolving]
